FAERS Safety Report 8041699-0 (Version None)
Quarter: 2012Q1

REPORT INFORMATION
  Report Type: 
  Country: None (occurrence: None)
  Receive Date: 20120112
  Receipt Date: 20120106
  Transmission Date: 20120608
  Serious: Yes (Other)
  Sender: FDA-Public Use
  Company Number: US-ABBOTT-12P-163-0890179-00

PATIENT
  Sex: Female
  Weight: 64.468 kg

DRUGS (7)
  1. METHOTREXATE [Concomitant]
     Indication: RHEUMATOID ARTHRITIS
  2. OXYCODONE HCL [Concomitant]
     Indication: PAIN
  3. PREDNISONE TAB [Concomitant]
     Indication: RHEUMATOID ARTHRITIS
  4. TRAMADOL HCL [Concomitant]
     Indication: PAIN
  5. HUMIRA [Suspect]
     Indication: RHEUMATOID ARTHRITIS
     Route: 058
     Dates: start: 20080204
  6. TYLENOL-500 [Concomitant]
     Indication: PAIN
  7. HUMIRA [Suspect]
     Route: 058
     Dates: start: 20110801, end: 20111001

REACTIONS (2)
  - RHEUMATOID ARTHRITIS [None]
  - OSTEOARTHRITIS [None]
